FAERS Safety Report 25478123 (Version 1)
Quarter: 2025Q2

REPORT INFORMATION
  Report Type: Spontaneous
  Country: US (occurrence: US)
  Receive Date: 20250625
  Receipt Date: 20250625
  Transmission Date: 20250717
  Serious: Yes (Death, Other)
  Sender: AMGEN
  Company Number: US-AMGEN-USASP2025121880

PATIENT
  Age: 17 Year
  Sex: Female

DRUGS (7)
  1. INTERFERON GAMMA-1B [Suspect]
     Active Substance: INTERFERON GAMMA-1B
     Indication: Disseminated coccidioidomycosis
     Dosage: 50 MICROGRAM/SQ. METER, 3 TIMES/WK
     Route: 058
  2. INTERFERON GAMMA-1B [Suspect]
     Active Substance: INTERFERON GAMMA-1B
     Dosage: 75 MICROGRAM/SQ. METER, 3 TIMES/WK
     Route: 058
  3. INTERFERON GAMMA-1B [Suspect]
     Active Substance: INTERFERON GAMMA-1B
     Dosage: 25 MICROGRAM/SQ. METER, 3 TIMES/WK
     Route: 058
  4. AMPHOTERICIN B [Concomitant]
     Active Substance: AMPHOTERICIN B
  5. POSACONAZOLE [Concomitant]
     Active Substance: POSACONAZOLE
  6. VORICONAZOLE [Concomitant]
     Active Substance: VORICONAZOLE
  7. MICAFUNGIN [Concomitant]
     Active Substance: MICAFUNGIN SODIUM

REACTIONS (6)
  - Disseminated coccidioidomycosis [Fatal]
  - Pancytopenia [Unknown]
  - Gene mutation [Unknown]
  - Therapy partial responder [Unknown]
  - Drug ineffective for unapproved indication [Unknown]
  - Off label use [Unknown]
